FAERS Safety Report 13340087 (Version 1)
Quarter: 2017Q1

REPORT INFORMATION
  Report Type: Spontaneous
  Country: US (occurrence: US)
  Receive Date: 20170316
  Receipt Date: 20170316
  Transmission Date: 20170428
  Serious: Yes (Other)
  Sender: FDA-Public Use
  Company Number: US-ASTRAZENECA-2017SE26964

PATIENT
  Sex: Female

DRUGS (1)
  1. BYDUREON [Suspect]
     Active Substance: EXENATIDE
     Route: 065

REACTIONS (8)
  - Coma [Unknown]
  - Systemic lupus erythematosus [Unknown]
  - Adverse event [Unknown]
  - Pancreatitis [Unknown]
  - Fatigue [Unknown]
  - Fibromyalgia [Unknown]
  - Diabetes mellitus inadequate control [Unknown]
  - Sensation of foreign body [Unknown]
